FAERS Safety Report 7559591-4 (Version None)
Quarter: 2011Q2

REPORT INFORMATION
  Report Type: 
  Country: None (occurrence: None)
  Receive Date: 20110621
  Receipt Date: 20110608
  Transmission Date: 20111010
  Serious: Yes (Hospitalization)
  Sender: FDA-Public Use
  Company Number: FR-PFIZER INC-2007071677

PATIENT
  Age: 16 Year
  Sex: Female
  Weight: 71 kg

DRUGS (12)
  1. FLUCONAZOLE [Suspect]
     Dosage: 400 MG, 1X/DAY
     Route: 042
     Dates: start: 20070726, end: 20070729
  2. GENTAMICIN SULFATE [Concomitant]
     Dates: start: 20070719, end: 20070722
  3. MIDAZOLAM HYDROCHLORIDE [Concomitant]
     Indication: SEDATION
  4. AUGMENTIN '125' [Concomitant]
     Dates: start: 20070707, end: 20070712
  5. ZYVOX [Suspect]
     Dosage: 600 MG, 2X/DAY
     Route: 042
     Dates: start: 20070724, end: 20070731
  6. PIPERACILLIN AND TAZOBACTAM [Suspect]
     Dosage: 4 G, 3X/DAY
     Route: 042
     Dates: start: 20070725, end: 20070801
  7. FENTANYL-100 [Concomitant]
     Indication: SEDATION
  8. KEPPRA [Suspect]
     Indication: GRAND MAL CONVULSION
     Route: 042
     Dates: start: 20070723, end: 20070804
  9. CIPROFLOXACIN [Suspect]
     Indication: LUNG DISORDER
     Route: 042
     Dates: start: 20070724, end: 20070731
  10. CLONAZEPAM [Suspect]
     Indication: STATUS EPILEPTICUS
     Dates: start: 20070716
  11. ORBENIN CAP [Concomitant]
     Dates: start: 20070718, end: 20070719
  12. TIENAM [Concomitant]
     Dates: start: 20070724, end: 20070724

REACTIONS (1)
  - LEUKOPENIA [None]
